FAERS Safety Report 5325450-0 (Version None)
Quarter: 2007Q2

REPORT INFORMATION
  Report Type: 
  Country: None (occurrence: None)
  Receive Date: 20070509
  Receipt Date: 20070503
  Transmission Date: 20071010
  Serious: Yes (Death)
  Sender: FDA-Public Use
  Company Number: 115

PATIENT
  Sex: Female

DRUGS (8)
  1. FAZACLO 100 MG ODT AVANIR PHARMACEUTICALS [Suspect]
     Indication: SCHIZOPHRENIA
     Dosage: 500 MG PO DAILY
     Route: 048
     Dates: start: 20070104, end: 20070403
  2. LISINOPRIL [Concomitant]
  3. FUROSEMIDE [Concomitant]
  4. POTASSIUM CHLORIDE [Concomitant]
  5. LEVOTHYROXINE SODIUM [Concomitant]
  6. CITALOPRAM HYDROBROMIDE [Concomitant]
  7. DDAVP (NEEDS NO REFRIGERATION) [Concomitant]
  8. OMEPRAZOLE [Concomitant]

REACTIONS (1)
  - DEATH [None]
